FAERS Safety Report 5390341-6 (Version None)
Quarter: 2007Q3

REPORT INFORMATION
  Report Type: 
  Country: None (occurrence: None)
  Receive Date: 20070718
  Receipt Date: 20070706
  Transmission Date: 20080115
  Serious: Yes (Disabling, Other)
  Sender: FDA-Public Use
  Company Number: US-PFIZER INC-2007034109

PATIENT
  Sex: Female
  Weight: 81.818 kg

DRUGS (7)
  1. CHANTIX [Suspect]
     Indication: SMOKING CESSATION THERAPY
  2. LIPITOR [Suspect]
     Indication: BLOOD CHOLESTEROL INCREASED
  3. CODEINE SUL TAB [Suspect]
  4. CHOLESTEROL [Suspect]
     Indication: BLOOD CHOLESTEROL INCREASED
  5. SOMA [Concomitant]
     Indication: MUSCLE RELAXANT THERAPY
  6. TYLENOL [Concomitant]
  7. MULTIVITAMIN [Concomitant]

REACTIONS (22)
  - ABASIA [None]
  - ABNORMAL DREAMS [None]
  - ANGIOPATHY [None]
  - ARTHRALGIA [None]
  - ASTHENIA [None]
  - CHEST PAIN [None]
  - DIARRHOEA [None]
  - DRY MOUTH [None]
  - DYSGEUSIA [None]
  - DYSPNOEA [None]
  - FATIGUE [None]
  - HEADACHE [None]
  - HEART RATE INCREASED [None]
  - HEART RATE IRREGULAR [None]
  - HYPERSENSITIVITY [None]
  - INSOMNIA [None]
  - MYALGIA [None]
  - NAUSEA [None]
  - PRURITUS [None]
  - SOMNOLENCE [None]
  - VISUAL DISTURBANCE [None]
  - VOMITING [None]
